FAERS Safety Report 25995191 (Version 1)
Quarter: 2025Q4

REPORT INFORMATION
  Report Type: Spontaneous
  Country: CN (occurrence: CN)
  Receive Date: 20251104
  Receipt Date: 20251104
  Transmission Date: 20260118
  Serious: Yes (Hospitalization, Other)
  Sender: MERCK SHARP & DOHME LLC
  Company Number: CN-009507513-2344769

PATIENT
  Age: 41 Year
  Sex: Female
  Weight: 52 kg

DRUGS (3)
  1. KEYTRUDA [Suspect]
     Active Substance: PEMBROLIZUMAB
     Indication: Bile duct adenocarcinoma
     Dosage: 200 MG Q3W (USED ONCE)
     Route: 041
     Dates: start: 20251017, end: 20251017
  2. GEMCITABINE HYDROCHLORIDE [Suspect]
     Active Substance: GEMCITABINE HYDROCHLORIDE
     Indication: Bile duct adenocarcinoma
     Dosage: TIME INTERVAL: CYCLICAL: 1.5G IVGTT D1, 8, Q3W (ALSO REPORTED AS 1.5 G FROM 17-OCT-2025 TO 18-OCT...
     Route: 041
     Dates: start: 20251017, end: 20251018
  3. CISPLATIN [Suspect]
     Active Substance: CISPLATIN
     Indication: Bile duct adenocarcinoma
     Dosage: TIME INTERVAL: CYCLICAL: 30MG IVGTT D1 + 40MG IVGTT D2-3 Q3W (ALSO REPORTED AS 30 MG FROM 17-OCT-...
     Route: 041
     Dates: start: 20251017, end: 20251019

REACTIONS (1)
  - Myelosuppression [Unknown]

NARRATIVE: CASE EVENT DATE: 20251017
